FAERS Safety Report 8137467-1 (Version None)
Quarter: 2012Q1

REPORT INFORMATION
  Report Type: 
  Country: None (occurrence: None)
  Receive Date: 20120213
  Receipt Date: 20120207
  Transmission Date: 20120608
  Serious: Yes (Other)
  Sender: FDA-Public Use
  Company Number: A0961716A

PATIENT
  Age: 83 Year
  Sex: Male

DRUGS (1)
  1. UREA PEROXIDE [Suspect]
     Indication: PRODUCT USED FOR UNKNOWN INDICATION
     Dosage: SINGLE DOSE
     Dates: start: 20120111, end: 20120111

REACTIONS (2)
  - DEAFNESS UNILATERAL [None]
  - CERUMEN IMPACTION [None]
